FAERS Safety Report 20154449 (Version 3)
Quarter: 2022Q3

REPORT INFORMATION
  Report Type: Spontaneous
  Country: JP (occurrence: JP)
  Receive Date: 20211207
  Receipt Date: 20220714
  Transmission Date: 20221027
  Serious: Yes (Hospitalization, Other)
  Sender: FDA-Public Use
  Company Number: JP-GSKNCCC-Case-01368641_AE-52526

PATIENT

DRUGS (5)
  1. TRELEGY ELLIPTA [Suspect]
     Active Substance: FLUTICASONE FUROATE\UMECLIDINIUM BROMIDE\VILANTEROL TRIFENATATE
     Indication: Emphysema
     Dosage: UNK, QD, 1 INHALATION
     Route: 055
  2. HERBALS [Suspect]
     Active Substance: HERBALS
     Dosage: 3.0 G, TID
     Route: 048
  3. ASPIRIN\LANSOPRAZOLE [Concomitant]
     Active Substance: ASPIRIN\LANSOPRAZOLE
     Indication: Cerebrovascular stenosis
     Dosage: 1 DF, QD
     Route: 048
  4. MICAMLO COMBINATION TABLETS AP [Concomitant]
     Indication: Hypertension
     Dosage: 1 DF, QD
     Route: 048
  5. ALINAMIN F [Concomitant]
     Active Substance: FURSULTIAMINE HYDROCHLORIDE
     Dosage: 50 MG, QD
     Route: 048

REACTIONS (5)
  - Eosinophilic pneumonia [Recovered/Resolved]
  - Pyrexia [Recovered/Resolved]
  - Cough [Recovered/Resolved]
  - Chronic obstructive pulmonary disease [Recovered/Resolved]
  - Upper respiratory tract infection [Recovered/Resolved]

NARRATIVE: CASE EVENT DATE: 20211120
